FAERS Safety Report 7001599-1 (Version None)
Quarter: 2010Q3

REPORT INFORMATION
  Report Type: 
  Country: None (occurrence: None)
  Receive Date: 20100916
  Receipt Date: 20100831
  Transmission Date: 20110219
  Serious: Yes (Disabling)
  Sender: FDA-Public Use
  Company Number: 018145

PATIENT
  Sex: Female
  Weight: 70.3 kg

DRUGS (2)
  1. CIMZIA [Suspect]
     Indication: CROHN'S DISEASE
     Dosage: (400 MG 1X/3 WEEKS SUBCUTANEOUS)
     Route: 058
     Dates: start: 20091231
  2. LEVAQUIN [Concomitant]

REACTIONS (5)
  - DIZZINESS [None]
  - EYE PAIN [None]
  - HEADACHE [None]
  - INJECTION SITE HAEMORRHAGE [None]
  - OPTIC NEURITIS [None]
